FAERS Safety Report 4844060-2 (Version None)
Quarter: 2005Q4

REPORT INFORMATION
  Report Type: 
  Country: None (occurrence: None)
  Receive Date: 20051202
  Receipt Date: 20051129
  Transmission Date: 20060501
  Serious: Yes (Life-Threatening, Hospitalization)
  Sender: FDA-Public Use
  Company Number: 2005AC01886

PATIENT
  Age: 41 Year
  Sex: Male

DRUGS (2)
  1. QUETIAPINE [Suspect]
     Indication: BIPOLAR DISORDER
     Route: 048
  2. QUETIAPINE [Suspect]
     Indication: GENERALISED ANXIETY DISORDER
     Route: 048

REACTIONS (4)
  - BACTERAEMIA [None]
  - OVERDOSE [None]
  - RESPIRATORY FAILURE [None]
  - SUICIDE ATTEMPT [None]
